FAERS Safety Report 23609905 (Version 1)
Quarter: 2024Q1

REPORT INFORMATION
  Report Type: Report from Study
  Country: US (occurrence: US)
  Receive Date: 20240308
  Receipt Date: 20240308
  Transmission Date: 20240410
  Serious: Yes (Hospitalization)
  Sender: FDA-Public Use
  Company Number: US-ABBVIE-5665714

PATIENT
  Sex: Male

DRUGS (2)
  1. HUMIRA [Suspect]
     Active Substance: ADALIMUMAB
     Indication: Colitis ulcerative
     Route: 058
     Dates: start: 20231025
  2. HUMIRA [Suspect]
     Active Substance: ADALIMUMAB
     Route: 058

REACTIONS (7)
  - Pulmonary thrombosis [Recovered/Resolved]
  - Depression [Not Recovered/Not Resolved]
  - Muscle spasms [Recovering/Resolving]
  - Pain [Recovering/Resolving]
  - Weight decreased [Unknown]
  - Diabetes mellitus [Unknown]
  - Atrial fibrillation [Unknown]
